FAERS Safety Report 10386036 (Version 1)
Quarter: 2014Q1

REPORT INFORMATION
  Report Type: Spontaneous
  Country: US (occurrence: None)
  Receive Date: 20140306
  Receipt Date: 20140306
  Transmission Date: 20141002
  Serious: Yes (Other)
  Sender: FDA-Public Use
  Company Number: 163-21880-13071340

PATIENT
  Age: 75 Year
  Sex: Female

DRUGS (12)
  1. REVLIMID (LENALIDOMIDE) (2.5. MILLIGRAM, CAPSULES) [Suspect]
     Indication: AMYLOIDOSIS
     Route: 048
     Dates: start: 201306
  2. FUROSEMIDE (TABLETS) [Concomitant]
  3. POTASSIUM CHLORIDE (SUSTAINED-RELEASE TABLET) [Concomitant]
  4. ATENOLOL (TABLETS) [Concomitant]
  5. ACYCLOVIR (ACICLOVIR) (TABLETS) [Concomitant]
  6. TRAZODONE (TABLETS) [Concomitant]
  7. CRESTOR (ROSUVASTATIN) (TABLETS) [Concomitant]
  8. PROBIOTICS (CAPSULES) [Concomitant]
  9. MULTIVITAMINS (TABLETS) [Concomitant]
  10. VITAMIN B COMPLEX (B-KOMPLEX ^LEVICA^) (TABLETS) [Concomitant]
  11. GLUCOSAMINE AND CHONDROITIN (JORIX) (TABLETS) [Concomitant]
  12. XARELTO (RIVAROXABAN) (TABLETS) [Concomitant]

REACTIONS (1)
  - Drug intolerance [None]
